FAERS Safety Report 7300441-9 (Version None)
Quarter: 2011Q1

REPORT INFORMATION
  Report Type: 
  Country: None (occurrence: None)
  Receive Date: 20110217
  Receipt Date: 20110209
  Transmission Date: 20110831
  Serious: Yes (Other)
  Sender: FDA-Public Use
  Company Number: GB-RB-022264-11

PATIENT

DRUGS (1)
  1. SUBUTEX [Suspect]
     Indication: PRODUCT USED FOR UNKNOWN INDICATION
     Dosage: DOSING DETAILS UNKNOWN.
     Route: 042

REACTIONS (4)
  - GANGRENE [None]
  - SKIN DISCOLOURATION [None]
  - INTENTIONAL DRUG MISUSE [None]
  - BLISTER [None]
